FAERS Safety Report 9637786 (Version 1)
Quarter: 2013Q4

REPORT INFORMATION
  Report Type: Spontaneous
  Country: CA (occurrence: CA)
  Receive Date: 20131022
  Receipt Date: 20131022
  Transmission Date: 20140711
  Serious: Yes (Other)
  Sender: FDA-Public Use
  Company Number: CA-TEVA-439299USA

PATIENT
  Sex: Female

DRUGS (1)
  1. TEVA-TERBINAFINE [Suspect]
     Indication: ONYCHOMYCOSIS
     Dosage: 250 MILLIGRAM DAILY; TOOK ONE PILL
     Dates: start: 20131017, end: 20131017

REACTIONS (6)
  - Swelling [Recovered/Resolved]
  - Swelling face [Recovered/Resolved]
  - Oropharyngeal pain [Recovered/Resolved]
  - Pharyngeal oedema [Recovered/Resolved]
  - Nausea [Recovered/Resolved]
  - Abdominal pain [Recovered/Resolved]
